FAERS Safety Report 13226914 (Version 3)
Quarter: 2017Q1

REPORT INFORMATION
  Report Type: Spontaneous
  Country: US (occurrence: US)
  Receive Date: 20170213
  Receipt Date: 20170315
  Transmission Date: 20170428
  Serious: Yes (Death)
  Sender: FDA-Public Use
  Company Number: US-SA-2017SA022606

PATIENT
  Age: 20 Year
  Sex: Male

DRUGS (2)
  1. ENOXAPARIN SODIUM - WINTHROP [Suspect]
     Active Substance: ENOXAPARIN SODIUM
     Indication: NEOPLASM MALIGNANT
     Dosage: DOSAGE FORM: INJECTION (SYRINGE)
     Route: 065
     Dates: start: 201604, end: 20160923
  2. ENOXAPARIN SODIUM - WINTHROP [Suspect]
     Active Substance: ENOXAPARIN SODIUM
     Indication: NEOPLASM MALIGNANT
     Dosage: DOSAGE FORM: INJECTION (SYRINGE)
     Route: 065
     Dates: start: 201604, end: 20160923

REACTIONS (1)
  - Neoplasm malignant [Fatal]
